FAERS Safety Report 6740400-8 (Version None)
Quarter: 2010Q2

REPORT INFORMATION
  Report Type: 
  Country: None (occurrence: None)
  Receive Date: 20100525
  Receipt Date: 20100428
  Transmission Date: 20101027
  Serious: Yes (Disabling, Other)
  Sender: FDA-Public Use
  Company Number: US-BAYER-200938978NA

PATIENT
  Age: 40 Year
  Sex: Female
  Weight: 86 kg

DRUGS (2)
  1. YAZ [Suspect]
     Indication: PREMENSTRUAL SYNDROME
     Route: 048
     Dates: start: 20080701, end: 20090301
  2. YASMIN [Suspect]
     Route: 048

REACTIONS (3)
  - GAIT DISTURBANCE [None]
  - INTRACARDIAC THROMBUS [None]
  - PAIN IN EXTREMITY [None]
